FAERS Safety Report 21301605 (Version 1)
Quarter: 2022Q3

REPORT INFORMATION
  Report Type: Spontaneous
  Country: US (occurrence: None)
  Receive Date: 20220906
  Receipt Date: 20220906
  Transmission Date: 20221027
  Serious: No
  Sender: FDA-Public Use
  Company Number: None

PATIENT
  Age: 16 Year
  Weight: 199 kg

DRUGS (4)
  1. ABILIFY [Suspect]
     Active Substance: ARIPIPRAZOLE
  2. INVEGA [Suspect]
     Active Substance: PALIPERIDONE
  3. RISPERIDONE [Suspect]
     Active Substance: RISPERIDONE
  4. VRAYLAR [Suspect]
     Active Substance: CARIPRAZINE

REACTIONS (16)
  - Hypersexuality [None]
  - Middle insomnia [None]
  - Violence-related symptom [None]
  - Hallucination [None]
  - Weight decreased [None]
  - Weight increased [None]
  - Abdominal pain upper [None]
  - Brain injury [None]
  - Amnesia [None]
  - Pain in extremity [None]
  - Hallucination, auditory [None]
  - Depression [None]
  - Somnambulism [None]
  - Euphoric mood [None]
  - Confusional state [None]
  - Somnolence [None]

NARRATIVE: CASE EVENT DATE: 20191109
